FAERS Safety Report 8490783-6 (Version None)
Quarter: 2012Q3

REPORT INFORMATION
  Report Type: 
  Country: None (occurrence: None)
  Receive Date: 20120706
  Receipt Date: 20120629
  Transmission Date: 20120928
  Serious: Yes (Hospitalization, Other)
  Sender: FDA-Public Use
  Company Number: US-BIOGENIDEC-2012BI013837

PATIENT
  Age: 63 Year
  Sex: Female

DRUGS (1)
  1. AVONEX [Suspect]
     Indication: MULTIPLE SCLEROSIS
     Route: 030
     Dates: start: 20110608, end: 20120327

REACTIONS (3)
  - IMPLANTABLE DEFIBRILLATOR INSERTION [None]
  - MYOCARDIAL INFARCTION [None]
  - INFLUENZA LIKE ILLNESS [None]
